FAERS Safety Report 18090659 (Version 1)
Quarter: 2020Q3

REPORT INFORMATION
  Report Type: Spontaneous
  Country: US (occurrence: US)
  Receive Date: 20200729
  Receipt Date: 20200729
  Transmission Date: 20201103
  Serious: Yes (Other)
  Sender: FDA-Public Use
  Company Number: US-SUN PHARMACEUTICAL INDUSTRIES LTD-2019R1-216271

PATIENT
  Age: 15 Year
  Sex: Female

DRUGS (2)
  1. BUPROPION. [Suspect]
     Active Substance: BUPROPION
     Indication: MAJOR DEPRESSION
     Dosage: DOSE INCREASED TO 300 MG
     Route: 065
  2. MIRTAZAPINE. [Suspect]
     Active Substance: MIRTAZAPINE
     Indication: DEPRESSION
     Dosage: INITIATED AT 15 MG
     Route: 065

REACTIONS (4)
  - Disease recurrence [Unknown]
  - Rapid eye movements sleep abnormal [Unknown]
  - Seizure [Unknown]
  - Weight increased [Unknown]
